FAERS Safety Report 5973483-3 (Version None)
Quarter: 2008Q4

REPORT INFORMATION
  Report Type: 
  Country: None (occurrence: None)
  Receive Date: 20081201
  Receipt Date: 20081121
  Transmission Date: 20090506
  Serious: Yes (Hospitalization)
  Sender: FDA-Public Use
  Company Number: US-ELI_LILLY_AND_COMPANY-US200810007076

PATIENT
  Sex: Female
  Weight: 79.819 kg

DRUGS (3)
  1. BYETTA [Suspect]
     Indication: TYPE 2 DIABETES MELLITUS
     Dosage: 5 UG, 2/D
     Route: 058
  2. BYETTA [Interacting]
     Dosage: 10 UG, 2/D
     Route: 058
  3. PIOGLITAZONE [Concomitant]
     Indication: TYPE 2 DIABETES MELLITUS
     Dosage: 15 MG, DAILY (1/D)
     Route: 048

REACTIONS (7)
  - ASTHENIA [None]
  - DELIRIUM [None]
  - DRUG INTERACTION [None]
  - FALL [None]
  - HERPES ZOSTER [None]
  - SYNCOPE [None]
  - WEIGHT DECREASED [None]
